FAERS Safety Report 4476686-2 (Version None)
Quarter: 2004Q4

REPORT INFORMATION
  Report Type: 
  Country: None (occurrence: None)
  Receive Date: 20041013
  Receipt Date: 20040910
  Transmission Date: 20050328
  Serious: Yes (Life-Threatening)
  Sender: FDA-Public Use
  Company Number: T04-USA-03685-01

PATIENT
  Age: 86 Year
  Sex: Male

DRUGS (19)
  1. MEMANTINE (OPEN LABEL, PHASE C) (MEMANTINE) [Suspect]
     Indication: DEMENTIA ALZHEIMER'S TYPE
     Dosage: 20 MG QD PO
     Route: 048
     Dates: start: 20031216, end: 20040810
  2. MEMANTINE (OPEN LABEL, PHASE A/B) (MEMANTINE) [Suspect]
     Indication: DEMENTIA ALZHEIMER'S TYPE
     Dosage: 10 MG BID PO
     Route: 048
     Dates: start: 20030625
  3. MEMANTINE (OPEN LABEL, PHASE A/B) (MEMANTINE) [Suspect]
     Indication: DEMENTIA ALZHEIMER'S TYPE
     Dosage: 15 MG QD PO
     Route: 048
     Dates: start: 20030618, end: 20030624
  4. MEMANTINE (OPEN, LABEL, PHASE A/B) (MEMANTINE) [Suspect]
     Indication: DEMENTIA ALZHEIMER'S TYPE
     Dosage: 5 MG BID PO
     Route: 048
     Dates: start: 20030611, end: 20030617
  5. MEMANTINE (OPEN LABEL, PHASE A/B) (MEMANTINE) [Suspect]
     Indication: DEMENTIA ALZHEIMER'S TYPE
     Dosage: 5 MG QHS PO
     Route: 048
     Dates: start: 20030604, end: 20030610
  6. HYDROCHLOROTHIAZIDE [Concomitant]
  7. TYLENOL (PARACTAMOL) [Concomitant]
  8. OLMESARTAN (OLMESARTAN MEDOXOMIL) [Concomitant]
  9. ESCITALOPRAM OXALATE [Concomitant]
  10. ZOLPIDEM TARTRATE [Concomitant]
  11. LEVOFLOXACIN [Concomitant]
  12. CLOPIDOGREL [Concomitant]
  13. ISOSORBIDE MONONITRATE [Concomitant]
  14. ASPIRIN [Concomitant]
  15. SIMVASTATIN [Concomitant]
  16. ENOXAPARIN SODIUM [Concomitant]
  17. NITROGLYCERIN ^A.L.^(GLYCERYL TRINITRATE) [Concomitant]
  18. NITROPROLOL [Concomitant]
  19. DILTIAZEM HCL (DILTAIZEM) [Concomitant]

REACTIONS (7)
  - ANAEMIA [None]
  - BLOOD CREATINE INCREASED [None]
  - BLOOD POTASSIUM INCREASED [None]
  - BLOOD UREA INCREASED [None]
  - GASTRIC CANCER [None]
  - GASTRIC ULCER [None]
  - GASTROINTESTINAL HAEMORRHAGE [None]
